FAERS Safety Report 17716813 (Version 1)
Quarter: 2020Q2

REPORT INFORMATION
  Report Type: Other
  Country: US (occurrence: US)
  Receive Date: 20200428
  Receipt Date: 20200428
  Transmission Date: 20200714
  Serious: Yes (Other)
  Sender: FDA-Public Use
  Company Number: US-HEALTHCARE PHARMACEUTICALS LTD.-2083264

PATIENT
  Age: 31 Year
  Sex: Female

DRUGS (1)
  1. DOXORUBICIN HYDROCHLORIDE. [Suspect]
     Active Substance: DOXORUBICIN HYDROCHLORIDE
     Indication: ANGIOCENTRIC LYMPHOMA
     Route: 065

REACTIONS (3)
  - Cardiomyopathy [Recovered/Resolved]
  - Disease recurrence [Unknown]
  - Cardiac failure [Recovered/Resolved]
